FAERS Safety Report 5555896-7 (Version None)
Quarter: 2007Q4

REPORT INFORMATION
  Report Type: 
  Country: None (occurrence: None)
  Receive Date: 20071213
  Receipt Date: 20070629
  Transmission Date: 20080405
  Serious: Yes (Hospitalization)
  Sender: FDA-Public Use
  Company Number: JP-BOEHRINGER INGELHEIM PHARMACEUTICALS, INC.-2007-BP-04527NB

PATIENT
  Sex: Female

DRUGS (3)
  1. BI-SIFROL TABLETS [Suspect]
     Indication: PARKINSON'S DISEASE
     Route: 048
     Dates: start: 20050316, end: 20060425
  2. MADOPAR [Suspect]
     Indication: PARKINSON'S DISEASE
     Route: 048
     Dates: start: 20030926
  3. FP [Concomitant]
     Indication: PARKINSON'S DISEASE
     Route: 048
     Dates: start: 20060106, end: 20060216

REACTIONS (2)
  - ACTIVITIES OF DAILY LIVING IMPAIRED [None]
  - POSTURE ABNORMAL [None]
